FAERS Safety Report 6879421-3 (Version None)
Quarter: 2010Q3

REPORT INFORMATION
  Report Type: 
  Country: None (occurrence: None)
  Receive Date: 20100728
  Receipt Date: 20100715
  Transmission Date: 20110219
  Serious: Yes (Other)
  Sender: FDA-Public Use
  Company Number: PHHY2010US47108

PATIENT
  Sex: Female

DRUGS (5)
  1. RECLAST [Suspect]
     Indication: OSTEOPOROSIS
     Dosage: 5 MG
     Route: 042
     Dates: start: 20100218
  2. TRIAMTERENE [Concomitant]
  3. AROMASIN [Concomitant]
     Dosage: 25 MG, UNK
  4. METOPROLOL TARTRATE [Concomitant]
  5. SIMVASTATIN [Concomitant]
     Dosage: 40 MG, UNK

REACTIONS (7)
  - BLOOD URINE PRESENT [None]
  - BONE PAIN [None]
  - DIARRHOEA [None]
  - HEADACHE [None]
  - INFLUENZA LIKE ILLNESS [None]
  - LARGE INTESTINAL HAEMORRHAGE [None]
  - PYREXIA [None]
